FAERS Safety Report 6793946-0 (Version None)
Quarter: 2010Q2

REPORT INFORMATION
  Report Type: 
  Country: None (occurrence: None)
  Receive Date: 20100624
  Receipt Date: 20090707
  Transmission Date: 20101027
  Serious: No
  Sender: FDA-Public Use
  Company Number: US-PFIZER INC-2009225247

PATIENT
  Sex: Female
  Weight: 50.802 kg

DRUGS (1)
  1. RELPAX [Suspect]
     Indication: MIGRAINE
     Dosage: 40 MG, AS NEEDED
     Route: 048
     Dates: start: 20060101, end: 20090101

REACTIONS (3)
  - ARTHRITIS [None]
  - LYME DISEASE [None]
  - MIGRAINE [None]
